FAERS Safety Report 8499819-X (Version None)
Quarter: 2012Q3

REPORT INFORMATION
  Report Type: 
  Country: None (occurrence: None)
  Receive Date: 20120710
  Receipt Date: 20120703
  Transmission Date: 20120928
  Serious: Yes (Other)
  Sender: FDA-Public Use
  Company Number: FR-TEVA-347244ISR

PATIENT
  Age: 46 Year
  Sex: Female

DRUGS (2)
  1. LEVOTHYROXINE SODIUM [Concomitant]
     Dosage: 1 DOSAGE FORMS;
     Route: 048
  2. CABERGOLINE TEVA [Suspect]
     Indication: PITUITARY TUMOUR BENIGN
     Dosage: .5 MILLIGRAM;
     Route: 048
     Dates: start: 20120531, end: 20120606

REACTIONS (3)
  - CONSTIPATION [None]
  - MEDICATION ERROR [None]
  - INAPPROPRIATE SCHEDULE OF DRUG ADMINISTRATION [None]
